FAERS Safety Report 8091847-1 (Version None)
Quarter: 2012Q1

REPORT INFORMATION
  Report Type: 
  Country: None (occurrence: None)
  Receive Date: 20120129
  Receipt Date: 20111110
  Transmission Date: 20120608
  Serious: No
  Sender: FDA-Public Use
  Company Number: US-ABBOTT-11P-163-0874217-00

PATIENT
  Sex: Female
  Weight: 43.584 kg

DRUGS (1)
  1. HUMIRA [Suspect]
     Indication: CROHN'S DISEASE
     Dates: start: 20090101

REACTIONS (3)
  - ANAL FISSURE [None]
  - ABDOMINAL PAIN [None]
  - DIARRHOEA [None]
